FAERS Safety Report 25050313 (Version 1)
Quarter: 2025Q1

REPORT INFORMATION
  Report Type: Spontaneous
  Country: US (occurrence: None)
  Receive Date: 20250306
  Receipt Date: 20250306
  Transmission Date: 20250409
  Serious: Yes (Other)
  Sender: FDA-CTU
  Company Number: None

PATIENT
  Age: 39 Year
  Sex: Male
  Weight: 76.5 kg

DRUGS (1)
  1. LORAZEPAM [Suspect]
     Active Substance: LORAZEPAM

REACTIONS (3)
  - Wrong patient received product [None]
  - Gait inability [None]
  - Muscular weakness [None]

NARRATIVE: CASE EVENT DATE: 20250305
